FAERS Safety Report 6430830-6 (Version None)
Quarter: 2009Q4

REPORT INFORMATION
  Report Type: 
  Country: None (occurrence: None)
  Receive Date: 20091105
  Receipt Date: 20091105
  Transmission Date: 20100525
  Serious: No
  Sender: FDA-Public Use
  Company Number: None

PATIENT
  Sex: Male
  Weight: 76.2043 kg

DRUGS (1)
  1. AMLODIPINE BESYLATE AND BENAZEPRIL HCL [Suspect]
     Indication: HYPERTENSION
     Dosage: 10-20 TEV
     Dates: start: 20070401, end: 20090901

REACTIONS (3)
  - MICTURITION FREQUENCY DECREASED [None]
  - POLLAKIURIA [None]
  - URINARY RETENTION [None]
